FAERS Safety Report 16918735 (Version 1)
Quarter: 2019Q4

REPORT INFORMATION
  Report Type: Spontaneous
  Country: GB (occurrence: GB)
  Receive Date: 20191015
  Receipt Date: 20191015
  Transmission Date: 20200122
  Serious: Yes (Other)
  Sender: FDA-Public Use
  Company Number: GB-OTSUKA-2019_035194

PATIENT
  Sex: Male

DRUGS (1)
  1. ARIPIPRAZOLE. [Suspect]
     Active Substance: ARIPIPRAZOLE
     Indication: AGITATION
     Dosage: 10 MG, UNK
     Route: 048

REACTIONS (2)
  - Product use in unapproved indication [Unknown]
  - Deep vein thrombosis [Recovered/Resolved]
